FAERS Safety Report 20605444 (Version 1)
Quarter: 2022Q1

REPORT INFORMATION
  Report Type: Spontaneous
  Country: US (occurrence: US)
  Receive Date: 20220317
  Receipt Date: 20220317
  Transmission Date: 20220423
  Serious: Yes (Other)
  Sender: FDA-Public Use
  Company Number: US-ROCHE-2907279

PATIENT
  Age: 65 Year
  Sex: Female
  Weight: 88.529 kg

DRUGS (9)
  1. CLONAZEPAM [Suspect]
     Active Substance: CLONAZEPAM
     Indication: Muscle spasticity
     Dosage: 1 MG, DAILY (EVERY NIGHT)
     Route: 048
  2. CLONAZEPAM [Suspect]
     Active Substance: CLONAZEPAM
     Indication: Muscle spasticity
     Dosage: 180 MG
     Route: 048
  3. OCREVUS [Suspect]
     Active Substance: OCRELIZUMAB
     Indication: Secondary progressive multiple sclerosis
     Dosage: 300 MG, EVERY 2 WEEKS (HALF DOSE: 300 MG AND SUBSEQUENT 600 MG)
     Route: 042
     Dates: start: 20210903, end: 202110
  4. OCREVUS [Suspect]
     Active Substance: OCRELIZUMAB
     Indication: Relapsing-remitting multiple sclerosis
     Dosage: 300 MG, EVERY 2 WEEKS (HALF DOSE: 300 MG AND SUBSEQUENT 600 MG)
     Route: 042
     Dates: start: 20210903, end: 202110
  5. OCREVUS [Suspect]
     Active Substance: OCRELIZUMAB
     Indication: Secondary progressive multiple sclerosis
     Dosage: 300 MG, EVERY 2 WEEKS (HALF DOSE: 300 MG AND SUBSEQUENT 600 MG)
     Route: 042
     Dates: start: 20210917
  6. OCREVUS [Suspect]
     Active Substance: OCRELIZUMAB
     Indication: Relapsing-remitting multiple sclerosis
     Dosage: 300 MG, EVERY 2 WEEKS (HALF DOSE: 300 MG AND SUBSEQUENT 600 MG)
     Route: 042
     Dates: start: 20210917
  7. CELLCEPT [Suspect]
     Active Substance: MYCOPHENOLATE MOFETIL
     Indication: Multiple sclerosis
     Dosage: UNK
     Route: 065
  8. DICLOFENAC [Concomitant]
     Active Substance: DICLOFENAC
     Indication: Pain
     Dosage: UNK
     Route: 065
  9. DICLOFENAC [Concomitant]
     Active Substance: DICLOFENAC
     Indication: Inflammation
     Dosage: UNK
     Route: 065

REACTIONS (14)
  - Multiple sclerosis [Unknown]
  - Neurogenic bladder [Unknown]
  - Alopecia [Recovered/Resolved]
  - Malaise [Not Recovered/Not Resolved]
  - Pain in extremity [Not Recovered/Not Resolved]
  - Central nervous system lesion [Not Recovered/Not Resolved]
  - Muscular weakness [Unknown]
  - Vertigo [Unknown]
  - Paraesthesia [Unknown]
  - Cognitive disorder [Unknown]
  - Muscle spasms [Unknown]
  - Gait disturbance [Unknown]
  - Physical examination abnormal [Unknown]
  - Product use in unapproved indication [Unknown]

NARRATIVE: CASE EVENT DATE: 20210901
